FAERS Safety Report 4473850-3 (Version None)
Quarter: 2004Q4

REPORT INFORMATION
  Report Type: 
  Country: None (occurrence: None)
  Receive Date: 20041008
  Receipt Date: 20041008
  Transmission Date: 20050328
  Serious: Yes (Death, Other)
  Sender: FDA-Public Use
  Company Number: None

PATIENT
  Age: 89 Year
  Sex: Female
  Weight: 49.1 kg

DRUGS (5)
  1. TAXOL [Suspect]
     Dates: start: 20040909
  2. TAXOL [Suspect]
  3. TAXOL [Suspect]
  4. TAXOL [Suspect]
  5. TAXOL [Suspect]

REACTIONS (3)
  - CHEST PAIN [None]
  - CORONARY ARTERY OCCLUSION [None]
  - DEVICE FAILURE [None]
